FAERS Safety Report 18980200 (Version 1)
Quarter: 2021Q1

REPORT INFORMATION
  Report Type: Report from Study
  Country: IT (occurrence: IT)
  Receive Date: 20210308
  Receipt Date: 20210308
  Transmission Date: 20210420
  Serious: Yes (Hospitalization)
  Sender: FDA-Public Use
  Company Number: IT-MYLANLABS-2021M1013924

PATIENT
  Age: 9 Year
  Sex: Male

DRUGS (10)
  1. QUETIAPINE. [Suspect]
     Active Substance: QUETIAPINE
     Indication: DYSTONIA
     Route: 065
  2. PHENOBARBITAL. [Suspect]
     Active Substance: PHENOBARBITAL
     Indication: DYSTONIA
     Route: 065
  3. TRIHEXYPHENIDYL [Suspect]
     Active Substance: TRIHEXYPHENIDYL
     Indication: CHOREA
  4. BACLOFEN. [Suspect]
     Active Substance: BACLOFEN
     Indication: DYSTONIA
     Route: 048
  5. BACLOFEN. [Suspect]
     Active Substance: BACLOFEN
     Indication: CHOREA
  6. QUETIAPINE. [Suspect]
     Active Substance: QUETIAPINE
     Indication: CHOREA
  7. PHENOBARBITAL. [Suspect]
     Active Substance: PHENOBARBITAL
     Indication: CHOREA
  8. TRIHEXYPHENIDYL [Suspect]
     Active Substance: TRIHEXYPHENIDYL
     Indication: DYSTONIA
     Route: 065
  9. MIDAZOLAM. [Suspect]
     Active Substance: MIDAZOLAM
     Indication: DYSTONIA
     Route: 065
  10. MIDAZOLAM. [Suspect]
     Active Substance: MIDAZOLAM
     Indication: CHOREA

REACTIONS (2)
  - Off label use [Unknown]
  - Drug ineffective [Unknown]
